FAERS Safety Report 6134681-1 (Version None)
Quarter: 2009Q1

REPORT INFORMATION
  Report Type: 
  Country: None (occurrence: None)
  Receive Date: 20090327
  Receipt Date: 20090318
  Transmission Date: 20090719
  Serious: Yes (Hospitalization, Other)
  Sender: FDA-Public Use
  Company Number: US-BIOGENIDEC-2009BI008462

PATIENT
  Age: 70 Year
  Sex: Male

DRUGS (1)
  1. AVONEX [Suspect]
     Indication: MULTIPLE SCLEROSIS
     Route: 030
     Dates: start: 20080903, end: 20081126

REACTIONS (5)
  - ABASIA [None]
  - EYE INFECTION [None]
  - PITUITARY TUMOUR [None]
  - VERTIGO [None]
  - VOMITING [None]
